FAERS Safety Report 21059047 (Version 3)
Quarter: 2023Q2

REPORT INFORMATION
  Report Type: Spontaneous
  Country: US (occurrence: US)
  Receive Date: 20220708
  Receipt Date: 20230626
  Transmission Date: 20230721
  Serious: Yes (Other)
  Sender: FDA-Public Use
  Company Number: US-PFIZER INC-PV202200018266

PATIENT
  Age: 61 Year
  Sex: Female

DRUGS (5)
  1. IBRANCE [Suspect]
     Active Substance: PALBOCICLIB
     Indication: Breast cancer female
     Dosage: 75 MG, CYCLIC (TAKE 1 TABLET EVERY DAY FOR 14 DAYS ON, THEN 14 DAYS OFF)
     Route: 048
     Dates: start: 20210119
  2. ALBUTEROL SULFATE [Concomitant]
     Active Substance: ALBUTEROL SULFATE
     Dosage: UNK, NEB
  3. AZELASTINE [Concomitant]
     Active Substance: AZELASTINE
     Dosage: UNK, SPR
  4. ESTRADIOL [Concomitant]
     Active Substance: ESTRADIOL
     Dosage: UNK
  5. ONDANSETRON [Concomitant]
     Active Substance: ONDANSETRON
     Dosage: UNK

REACTIONS (5)
  - Neutropenia [Unknown]
  - Stomatitis [Unknown]
  - Alopecia [Unknown]
  - Off label use [Unknown]
  - Product dose omission issue [Unknown]
